FAERS Safety Report 7917110-4 (Version None)
Quarter: 2011Q4

REPORT INFORMATION
  Report Type: 
  Country: None (occurrence: None)
  Receive Date: 20111116
  Receipt Date: 20111026
  Transmission Date: 20120403
  Serious: Yes (Other)
  Sender: FDA-Public Use
  Company Number: US-JNJCP-30000076544

PATIENT
  Age: 65 Year
  Sex: Female
  Weight: 61 kg

DRUGS (6)
  1. ZOLOFT [Concomitant]
     Indication: STRESS
     Dosage: 10MG ONCE A DAY SINCE SIX YEARS
  2. NTG CLINICAL LIFT DAY ACTIV CRM 0.5 OZ USA 070501057209 7050105720USC [Suspect]
     Dosage: PEA SIZE AMOUNT ONCE A DAY
     Route: 061
     Dates: start: 20110625, end: 20110725
  3. AVONEX [Concomitant]
     Indication: MULTIPLE SCLEROSIS
     Dosage: ONCE A WEEK SINCE TWELVE YEARS
  4. BACLOFEN [Concomitant]
     Indication: MULTIPLE SCLEROSIS
     Dosage: THREE TIMES A DAY SINCE TWELVE YEARS
  5. CELEBREX [Concomitant]
     Dosage: ONCE A WEEK SINCE TWELVE YEARS
  6. NTG CLINICAL LIFT ION2 CPLX SRM 0.5 OZ USA 070501057209 7050105720USB [Suspect]
     Dosage: PEA SIZE AMOUNT ONCE A DAY
     Route: 061
     Dates: start: 20110625, end: 20110725

REACTIONS (1)
  - SKIN CANCER [None]
